FAERS Safety Report 8351489-7 (Version None)
Quarter: 2012Q2

REPORT INFORMATION
  Report Type: 
  Country: None (occurrence: None)
  Receive Date: 20120510
  Receipt Date: 20120504
  Transmission Date: 20120825
  Serious: Yes (Other)
  Sender: FDA-Public Use
  Company Number: CHPA2012US008995

PATIENT
  Age: 51 Year
  Sex: Male

DRUGS (1)
  1. EXCEDRIN EXTRA STRENGTH TABLETS [Suspect]
     Indication: HEADACHE
     Dosage: 2 DF, ONCE/SINGLE
     Route: 048
     Dates: start: 20120405, end: 20120405

REACTIONS (6)
  - RESTLESSNESS [None]
  - DISORIENTATION [None]
  - TREMOR [None]
  - FATIGUE [None]
  - HYPERTENSION [None]
  - DYSPNOEA [None]
